FAERS Safety Report 5729029-8 (Version None)
Quarter: 2008Q2

REPORT INFORMATION
  Report Type: 
  Country: None (occurrence: None)
  Receive Date: 20080505
  Receipt Date: 20080505
  Transmission Date: 20081010
  Serious: Yes (Other)
  Sender: FDA-Public Use
  Company Number: None

PATIENT
  Sex: Male
  Weight: 89.8122 kg

DRUGS (1)
  1. VYTORIN [Suspect]
     Indication: BLOOD CHOLESTEROL
     Dosage: 10/20  (1) DAILY
     Dates: start: 20080101, end: 20080201

REACTIONS (2)
  - ASTHENIA [None]
  - MYALGIA [None]
